FAERS Safety Report 7526682-3 (Version None)
Quarter: 2011Q2

REPORT INFORMATION
  Report Type: 
  Country: None (occurrence: None)
  Receive Date: 20110606
  Receipt Date: 20110530
  Transmission Date: 20111010
  Serious: Yes (Death, Life-Threatening, Hospitalization)
  Sender: FDA-Public Use
  Company Number: PT-CELGENEUS-130-C5013-11042330

PATIENT
  Sex: Male
  Weight: 61 kg

DRUGS (12)
  1. LENALIDOMIDE [Suspect]
     Dosage: 25 MILLIGRAM
     Route: 048
     Dates: start: 20110331, end: 20110411
  2. IRBESARTAN AND HYDROCHLOROTHIAZIDE [Concomitant]
     Dosage: 1 TABLET
     Route: 048
     Dates: start: 20110412
  3. ASPIRIN [Concomitant]
     Indication: THROMBOSIS PROPHYLAXIS
     Dosage: 100 MILLIGRAM
     Route: 048
     Dates: start: 20100204, end: 20110412
  4. LORAZEPAM [Concomitant]
     Indication: ANXIOLYTIC THERAPY
     Dosage: 2.5 MILLIGRAM
     Route: 048
     Dates: start: 20100112, end: 20110411
  5. DEXAMETHASONE [Suspect]
     Dosage: 40 MILLIGRAM
     Route: 051
  6. LENALIDOMIDE [Suspect]
     Indication: MULTIPLE MYELOMA
     Dosage: 25 MILLIGRAM
     Route: 048
     Dates: start: 20100204
  7. IRBESARTAN AND HYDROCHLOROTHIAZIDE [Concomitant]
     Dosage: 150+12.5
     Route: 048
     Dates: start: 20100112, end: 20110506
  8. DEXAMETHASONE [Suspect]
     Indication: MULTIPLE MYELOMA
     Dosage: 20 MILLIGRAM
     Route: 065
     Dates: start: 20100204
  9. DEXAMETHASONE [Suspect]
     Dosage: 20 MILLIGRAM
     Route: 065
     Dates: start: 20110203, end: 20110303
  10. ASPIRIN [Concomitant]
     Dosage: 600 MILLIGRAM
     Route: 048
  11. OMEPRAZOLE [Concomitant]
     Indication: PROPHYLAXIS
     Dosage: 20 MILLIGRAM
     Route: 048
     Dates: start: 20100202, end: 20110411
  12. IRBESARTAN [Concomitant]
     Dosage: 12.5 MILLIGRAM
     Route: 048

REACTIONS (6)
  - GINGIVAL BLEEDING [None]
  - CONFUSIONAL STATE [None]
  - BRONCHOPNEUMONIA [None]
  - RENAL FAILURE CHRONIC [None]
  - MOOD ALTERED [None]
  - MULTIPLE MYELOMA [None]
